FAERS Safety Report 7533676-0 (Version None)
Quarter: 2011Q2

REPORT INFORMATION
  Report Type: 
  Country: None (occurrence: None)
  Receive Date: 20110608
  Receipt Date: 20060405
  Transmission Date: 20111010
  Serious: Yes (Death, Hospitalization)
  Sender: FDA-Public Use
  Company Number: PHFR2006GB01136

PATIENT
  Sex: Female

DRUGS (2)
  1. CLOZAPINE [Suspect]
     Indication: SCHIZOPHRENIA
     Dosage: UNK, UNK
     Route: 048
     Dates: start: 19930805
  2. VALPROATE SODIUM [Concomitant]
     Indication: EPILEPSY

REACTIONS (6)
  - CARDIAC DEATH [None]
  - HAEMOGLOBIN DECREASED [None]
  - CONVULSION [None]
  - HYPERNATRAEMIA [None]
  - DYSPHAGIA [None]
  - DIABETES INSIPIDUS [None]
